FAERS Safety Report 18948038 (Version 1)
Quarter: 2021Q1

REPORT INFORMATION
  Report Type: Spontaneous
  Country: FR (occurrence: FR)
  Receive Date: 20210226
  Receipt Date: 20210226
  Transmission Date: 20210420
  Serious: Yes (Hospitalization, Other)
  Sender: FDA-Public Use
  Company Number: FR-TEVA-2021-FR-1883572

PATIENT
  Age: 76 Year
  Sex: Female
  Weight: 68 kg

DRUGS (13)
  1. DOXORUBICINE [DOXORUBICIN] [Suspect]
     Active Substance: DOXORUBICIN
     Indication: DIFFUSE LARGE B-CELL LYMPHOMA RECURRENT
     Dosage: (6 TREATMENTS IN TOTAL)
     Route: 042
     Dates: start: 201511, end: 201602
  2. CYCLOPHOSPHAMIDE. [Suspect]
     Active Substance: CYCLOPHOSPHAMIDE
     Indication: DIFFUSE LARGE B-CELL LYMPHOMA RECURRENT
     Dosage: 6 CURE FROM ?NOV?2015 TO ?FEB?2016 THEN FROM 26 TO 28?OCT?2019 LYMPHODEPLETION
     Route: 042
     Dates: start: 201511, end: 20191028
  3. METHOTREXATE. [Suspect]
     Active Substance: METHOTREXATE
     Indication: DIFFUSE LARGE B-CELL LYMPHOMA RECURRENT
     Dosage: 4 INJECTIONS
     Route: 037
     Dates: start: 2017, end: 2018
  4. FLUDARABINE [FLUDARABINE PHOSPHATE] [Suspect]
     Active Substance: FLUDARABINE PHOSPHATE
     Indication: DIFFUSE LARGE B-CELL LYMPHOMA RECURRENT
     Route: 042
     Dates: start: 20191026, end: 20191028
  5. OXALIPLATINE [Suspect]
     Active Substance: OXALIPLATIN
     Indication: DIFFUSE LARGE B-CELL LYMPHOMA RECURRENT
     Dosage: (7 TREATMENTS IN TOTAL)
     Route: 042
     Dates: start: 201807, end: 201811
  6. CARBOPLATINE [Suspect]
     Active Substance: CARBOPLATIN
     Indication: DIFFUSE LARGE B-CELL LYMPHOMA RECURRENT
     Dosage: (6 TREATMENTS IN TOTAL)
     Route: 042
     Dates: start: 201710, end: 201801
  7. RITUXIMAB. [Suspect]
     Active Substance: RITUXIMAB
     Indication: DIFFUSE LARGE B-CELL LYMPHOMA RECURRENT
     Dosage: (25 TREATMENTS IN TOTAL)
     Route: 042
     Dates: start: 201511, end: 202007
  8. POLATUZUMAB VEDOTIN. [Suspect]
     Active Substance: POLATUZUMAB VEDOTIN
     Indication: DIFFUSE LARGE B-CELL LYMPHOMA RECURRENT
     Dosage: (6 TREATMENTS)
     Route: 042
     Dates: start: 202003, end: 202007
  9. TISAGENLECLEUCEL?T [Suspect]
     Active Substance: TISAGENLECLEUCEL
     Indication: DIFFUSE LARGE B-CELL LYMPHOMA RECURRENT
     Route: 042
     Dates: start: 20191031
  10. BENDAMUSTINE HYDROCHLORIDE. [Suspect]
     Active Substance: BENDAMUSTINE HYDROCHLORIDE
     Indication: DIFFUSE LARGE B-CELL LYMPHOMA RECURRENT
     Dosage: (6 TREATMENTS IN TOTAL)
     Route: 042
     Dates: start: 202003, end: 202007
  11. GEMZAR [Suspect]
     Active Substance: GEMCITABINE HYDROCHLORIDE
     Indication: DIFFUSE LARGE B-CELL LYMPHOMA RECURRENT
     Dosage: (7 TREATMENTS IN TOTAL)
     Route: 042
     Dates: start: 201807, end: 201811
  12. VINCRISTINE [VINCRISTINE SULFATE] [Suspect]
     Active Substance: VINCRISTINE SULFATE
     Indication: DIFFUSE LARGE B-CELL LYMPHOMA RECURRENT
     Dosage: (6 TREATMENTS IN TOTAL)
     Route: 042
     Dates: start: 201511, end: 201602
  13. CYTARABINE. [Suspect]
     Active Substance: CYTARABINE
     Indication: DIFFUSE LARGE B-CELL LYMPHOMA RECURRENT
     Dosage: (6 TREATMENTS IN TOTAL)
     Route: 042
     Dates: start: 201710, end: 201801

REACTIONS (2)
  - Acute myeloid leukaemia [Not Recovered/Not Resolved]
  - Product use in unapproved indication [Unknown]

NARRATIVE: CASE EVENT DATE: 202003
